FAERS Safety Report 9027182 (Version 3)
Quarter: 2013Q1

REPORT INFORMATION
  Report Type: Report from Study
  Country: US (occurrence: US)
  Receive Date: 20130123
  Receipt Date: 20130308
  Transmission Date: 20140127
  Serious: Yes (Other)
  Sender: FDA-Public Use
  Company Number: US-GLAXOSMITHKLINE-Z0018320A

PATIENT
  Age: 27 Year
  Sex: Female

DRUGS (3)
  1. OSELTAMIVIR [Suspect]
     Indication: INFLUENZA
     Dosage: 75MG TWICE PER DAY
     Route: 048
     Dates: start: 20121228, end: 20130104
  2. ZANAMIVIR [Suspect]
     Indication: INFLUENZA
     Dosage: 600MG TWICE PER DAY
     Route: 042
     Dates: start: 20130105, end: 20130109
  3. SEROQUEL [Concomitant]
     Indication: DELIRIUM
     Dosage: 50MG THREE TIMES PER DAY
     Route: 048
     Dates: start: 20130103, end: 20130110

REACTIONS (1)
  - Drug-induced liver injury [Recovered/Resolved]
